FAERS Safety Report 4885232-0 (Version None)
Quarter: 2005Q4

REPORT INFORMATION
  Report Type: 
  Country: None (occurrence: None)
  Receive Date: 20051216
  Receipt Date: 20051110
  Transmission Date: 20060501
  Serious: No
  Sender: FDA-Public Use
  Company Number: BDI-007731

PATIENT
  Age: 46 Year
  Sex: Male

DRUGS (1)
  1. MULTIHANCE [Suspect]
     Indication: NUCLEAR MAGNETIC RESONANCE IMAGING BRAIN
     Dosage: 18 ML ONCE IV
     Route: 042
     Dates: start: 20051103, end: 20051103

REACTIONS (2)
  - NAUSEA [None]
  - VOMITING [None]
